FAERS Safety Report 5946935-X (Version None)
Quarter: 2008Q4

REPORT INFORMATION
  Report Type: 
  Country: None (occurrence: None)
  Receive Date: 20081110
  Receipt Date: 20081027
  Transmission Date: 20090506
  Serious: Yes (Death)
  Sender: FDA-Public Use
  Company Number: BE-ASTRAZENECA-2008AC02554

PATIENT
  Age: 31716 Day
  Sex: Female
  Weight: 72.3 kg

DRUGS (4)
  1. ZESTRIL [Suspect]
     Dates: start: 20051201
  2. GLURENORM [Suspect]
  3. PLAVIX [Suspect]
  4. AMLOD [Suspect]

REACTIONS (1)
  - INTESTINAL ISCHAEMIA [None]
